FAERS Safety Report 5458608-0 (Version None)
Quarter: 2007Q3

REPORT INFORMATION
  Report Type: 
  Country: None (occurrence: None)
  Receive Date: 20070919
  Receipt Date: 20070405
  Transmission Date: 20080115
  Serious: No
  Sender: FDA-Public Use
  Company Number: US-ASTRAZENECA-2007UW06819

PATIENT
  Age: 19 Year
  Sex: Female

DRUGS (3)
  1. SEROQUEL [Suspect]
     Route: 048
  2. ADDERALL [Concomitant]
  3. CELEXA [Concomitant]

REACTIONS (1)
  - DENTAL CARIES [None]
